FAERS Safety Report 18325849 (Version 1)
Quarter: 2020Q3

REPORT INFORMATION
  Report Type: Spontaneous
  Country: CZ (occurrence: CZ)
  Receive Date: 20200929
  Receipt Date: 20200929
  Transmission Date: 20201103
  Serious: Yes (Other)
  Sender: FDA-Public Use
  Company Number: CZ-MYLANLABS-2020M1082933

PATIENT
  Age: 57 Year
  Sex: Male

DRUGS (26)
  1. LYRICA [Suspect]
     Active Substance: PREGABALIN
     Dosage: GRADUALLY INCREASING DOSES UP TO 150?150?300 MG
     Route: 065
     Dates: start: 201506
  2. LEXAURIN [Suspect]
     Active Substance: BROMAZEPAM
     Indication: PAIN
     Dosage: 1.5 MILLIGRAM, BID
     Route: 065
     Dates: start: 201506, end: 201511
  3. MENTHOL. [Suspect]
     Active Substance: MENTHOL
     Indication: PAIN
     Dosage: AS MAGISTRAL PREPARATION
     Route: 061
     Dates: start: 2016
  4. CYANOCOBALAMIN. [Concomitant]
     Active Substance: CYANOCOBALAMIN
     Indication: PAIN
     Dosage: 1000 MICROGRAM
     Route: 030
     Dates: start: 201505
  5. NEUROL                             /00595201/ [Concomitant]
     Active Substance: ALPRAZOLAM
     Indication: TENSION
     Dosage: 0.5 MILLIGRAM, BID
     Route: 065
     Dates: start: 201605
  6. HERPESIN                           /00587301/ [Suspect]
     Active Substance: ACYCLOVIR
     Indication: PAIN
  7. APO?SERTRALINE [Suspect]
     Active Substance: SERTRALINE HYDROCHLORIDE
     Indication: PAIN
     Dosage: 50 MILLIGRAM, QD
     Route: 065
     Dates: start: 201506
  8. PALEXIA [Concomitant]
     Active Substance: TAPENTADOL HYDROCHLORIDE
     Dosage: 100 MILLIGRAM, BID FILM?COATED TABLETS 2 X 100 MG DURING THE DAY
     Route: 065
  9. LYRICA [Suspect]
     Active Substance: PREGABALIN
     Indication: PAIN
     Dosage: UNK
     Route: 065
  10. TRAMADOL/PARACETAMOL [Concomitant]
     Active Substance: ACETAMINOPHEN\TRAMADOL
     Indication: PAIN
     Dosage: 3 TIMES DAILY
     Route: 065
     Dates: start: 201505
  11. CALYPSOL [Suspect]
     Active Substance: KETAMINE HYDROCHLORIDE
     Indication: PAIN
     Dosage: 25 MILLIGRAM, QID MAXIMUM 4 TIMES DAILY
     Route: 048
     Dates: start: 201505, end: 201506
  12. QUTENZA [Suspect]
     Active Substance: CAPSAICIN
     Indication: PAIN
     Route: 061
  13. LIDOCAINE. [Suspect]
     Active Substance: LIDOCAINE
     Indication: PAIN
     Dosage: AS MAGISTRAL PREPARATION
     Route: 061
     Dates: start: 2016
  14. GABAPENTIN. [Concomitant]
     Active Substance: GABAPENTIN
     Dosage: 400 MILLIGRAM, TID 3 X 400 MG
     Route: 065
     Dates: start: 201505
  15. TRAMADOL. [Suspect]
     Active Substance: TRAMADOL
     Indication: PAIN
     Dosage: 100 MILLIGRAM, BID SR 2 X 100 MG TABLETS
     Route: 065
     Dates: start: 201505
  16. LYRICA [Suspect]
     Active Substance: PREGABALIN
     Dosage: PREGABALIN DOSE WAS INCREASED TO 300MG TWICE DAILY
     Route: 065
  17. VERSATIS [Suspect]
     Active Substance: LIDOCAINE
     Indication: PAIN
     Route: 061
     Dates: start: 201506
  18. GABAPENTIN. [Concomitant]
     Active Substance: GABAPENTIN
     Indication: PAIN
     Dosage: 300 MILLIGRAM, TID; 3 X 300 MG
     Route: 065
     Dates: start: 201505
  19. TRIMECAINE [Concomitant]
     Active Substance: TRIMECAINE
     Indication: PAIN
     Dosage: PARAVERTEBRAL INJECTION
     Route: 065
     Dates: start: 201505
  20. HERPESIN                           /00587301/ [Suspect]
     Active Substance: ACYCLOVIR
     Indication: HERPES ZOSTER
     Route: 065
     Dates: start: 201505
  21. TRALGIT [Suspect]
     Active Substance: TRAMADOL
     Indication: PAIN
     Dosage: 30 DROPS DURING PAIN AGGRAVATION UP TO 3 TIMES A DAY.
     Route: 065
     Dates: start: 201505
  22. CALYPSOL [Suspect]
     Active Substance: KETAMINE HYDROCHLORIDE
     Dosage: 25 MILLIGRAM, QID
     Route: 048
     Dates: start: 2016
  23. LYRICA [Suspect]
     Active Substance: PREGABALIN
     Dosage: 150 MILLIGRAM, BID
     Route: 065
  24. PALEXIA [Concomitant]
     Active Substance: TAPENTADOL HYDROCHLORIDE
     Indication: PAIN
     Dosage: 100 MILLIGRAM, TID FILM?COATED TABLETS 3 TIMES DAILY
     Route: 065
     Dates: start: 201505
  25. PALEXIA [Concomitant]
     Active Substance: TAPENTADOL HYDROCHLORIDE
     Indication: PAIN
     Dosage: 150 MILLIGRAM, QD CONTROLLED?RELEASE TABLETS (PALEXIA RETARD) 150 MG PER NIGHT,
     Route: 065
     Dates: start: 201506
  26. PALEXIA [Concomitant]
     Active Substance: TAPENTADOL HYDROCHLORIDE
     Dosage: 150 MILLIGRAM, BID
     Route: 065
     Dates: start: 201511

REACTIONS (1)
  - Drug ineffective [Unknown]
